FAERS Safety Report 7962093-4 (Version None)
Quarter: 2011Q4

REPORT INFORMATION
  Report Type: 
  Country: None (occurrence: None)
  Receive Date: 20111207
  Receipt Date: 20111129
  Transmission Date: 20120403
  Serious: Yes (Other)
  Sender: FDA-Public Use
  Company Number: FR-BRISTOL-MYERS SQUIBB COMPANY-16165359

PATIENT
  Age: 29 Year
  Sex: Female
  Weight: 55 kg

DRUGS (2)
  1. ESCITALOPRAM OXALATE [Concomitant]
     Indication: BIPOLAR DISORDER
     Dates: start: 20090905
  2. ABILIFY [Suspect]
     Indication: BIPOLAR DISORDER
     Dosage: 1DF:ABOUT 6 MONTHS
     Route: 048
     Dates: start: 20100905

REACTIONS (5)
  - HEADACHE [None]
  - VOMITING [None]
  - FIBRIN D DIMER INCREASED [None]
  - ALANINE AMINOTRANSFERASE INCREASED [None]
  - NAUSEA [None]
